FAERS Safety Report 15852451 (Version 4)
Quarter: 2019Q3

REPORT INFORMATION
  Report Type: Spontaneous
  Country: CZ (occurrence: CZ)
  Receive Date: 20190122
  Receipt Date: 20190830
  Transmission Date: 20191004
  Serious: Yes (Hospitalization)
  Sender: FDA-Public Use
  Company Number: CZ-AUROBINDO-AUR-APL-2019-001298

PATIENT

DRUGS (19)
  1. AMOXICILLIN. [Suspect]
     Active Substance: AMOXICILLIN
     Indication: PYREXIA
  2. BETAMETHASONE. [Concomitant]
     Active Substance: BETAMETHASONE
     Indication: PRODUCT USED FOR UNKNOWN INDICATION
     Dosage: UNK
     Route: 061
  3. AMOXICILLIN. [Suspect]
     Active Substance: AMOXICILLIN
     Indication: CHRONIC SPONTANEOUS URTICARIA
     Dosage: UNK
     Route: 048
  4. AMOXICILLIN. [Suspect]
     Active Substance: AMOXICILLIN
     Indication: URTICARIA
     Dosage: 1 GRAM, TWO TIMES A DAY
     Route: 048
     Dates: start: 20160226
  5. BETAMETHASONE SODIUM PHOSPHATE [Concomitant]
     Active Substance: BETAMETHASONE SODIUM PHOSPHATE
     Indication: CHRONIC SPONTANEOUS URTICARIA
     Dosage: UNK
     Route: 030
  6. AZITHROMYCIN ANHYDROUS. [Suspect]
     Active Substance: AZITHROMYCIN ANHYDROUS
     Indication: CHRONIC SPONTANEOUS URTICARIA
     Dosage: UNK, 6 DAYS
     Route: 065
  7. PREDNISONE. [Suspect]
     Active Substance: PREDNISONE
     Dosage: 60 MILLIGRAM, ONCE A DAY
     Route: 048
     Dates: start: 20160212, end: 201602
  8. PREDNISONE. [Suspect]
     Active Substance: PREDNISONE
     Dosage: 10 MILLIGRAM, ONCE A DAY
     Route: 048
     Dates: start: 2016
  9. AZITHROMYCIN ANHYDROUS. [Suspect]
     Active Substance: AZITHROMYCIN ANHYDROUS
     Indication: URTICARIA
     Dosage: 500 MILLIGRAM, ONCE A DAY
     Route: 065
     Dates: start: 20160203, end: 20160209
  10. PREDNISONE. [Suspect]
     Active Substance: PREDNISONE
     Dosage: 40 MILLIGRAM, ONCE A DAY
     Route: 048
     Dates: start: 201602, end: 2016
  11. XOLAIR [Concomitant]
     Active Substance: OMALIZUMAB
     Dosage: UNK, CYCLICAL
     Route: 065
     Dates: start: 201604
  12. PREDNISONE. [Suspect]
     Active Substance: PREDNISONE
     Indication: CHRONIC SPONTANEOUS URTICARIA
     Dosage: 10 MILLIGRAM, ONCE A DAY
     Route: 048
     Dates: start: 201612
  13. BILASTINE [Suspect]
     Active Substance: BILASTINE
     Dosage: 60 MILLIGRAM, ONCE A DAY
     Route: 048
     Dates: start: 201602
  14. BILASTINE [Suspect]
     Active Substance: BILASTINE
     Indication: CHRONIC SPONTANEOUS URTICARIA
     Dosage: 20 MILLIGRAM, ONCE A DAY
     Route: 065
     Dates: start: 2016, end: 2016
  15. BILASTINE [Suspect]
     Active Substance: BILASTINE
     Dosage: 40 MILLIGRAM, ONCE A DAY
     Route: 065
     Dates: start: 201612
  16. BISULEPIN HYDROCHLORIDE [Concomitant]
     Active Substance: BISULEPIN HYDROCHLORIDE
     Indication: PRODUCT USED FOR UNKNOWN INDICATION
     Dosage: UNK
     Route: 065
  17. XOLAIR [Concomitant]
     Active Substance: OMALIZUMAB
     Indication: CHRONIC SPONTANEOUS URTICARIA
     Dosage: UNK, CYCLICAL
     Route: 065
     Dates: start: 20161221
  18. BILASTINE [Suspect]
     Active Substance: BILASTINE
     Dosage: 40 MILLIGRAM, ONCE A DAY
     Route: 048
     Dates: start: 2016, end: 201602
  19. DIPROPHOS [Concomitant]
     Active Substance: BETAMETHASONE DIPROPIONATE\BETAMETHASONE SODIUM PHOSPHATE
     Indication: CHRONIC SPONTANEOUS URTICARIA
     Dosage: 1 MILLILITER, UNK
     Route: 030
     Dates: start: 201602

REACTIONS (7)
  - Prescribed overdose [Unknown]
  - Nausea [Recovered/Resolved]
  - Leukocytosis [Unknown]
  - Polycythaemia [Unknown]
  - Drug ineffective [Recovered/Resolved]
  - Abdominal pain lower [Recovered/Resolved]
  - Rash vesicular [Recovering/Resolving]

NARRATIVE: CASE EVENT DATE: 2016
